FAERS Safety Report 5027711-1 (Version None)
Quarter: 2006Q2

REPORT INFORMATION
  Report Type: 
  Country: None (occurrence: None)
  Receive Date: 20060614
  Receipt Date: 20060614
  Transmission Date: 20061013
  Serious: Yes (Other)
  Sender: FDA-Public Use
  Company Number: None

PATIENT
  Age: 53 Year
  Sex: Male
  Weight: 101.6057 kg

DRUGS (1)
  1. NIACIN [Suspect]
     Indication: DYSLIPIDAEMIA
     Dosage: 500MG  PO  QHS
     Route: 048
     Dates: start: 20051018, end: 20060411

REACTIONS (2)
  - ALANINE AMINOTRANSFERASE INCREASED [None]
  - ASPARTATE AMINOTRANSFERASE INCREASED [None]
